FAERS Safety Report 10522873 (Version 2)
Quarter: 2014Q4

REPORT INFORMATION
  Report Type: Spontaneous
  Country: US (occurrence: US)
  Receive Date: 20141016
  Receipt Date: 20141016
  Transmission Date: 20150528
  Serious: Yes (Death, Hospitalization, Other)
  Sender: FDA-Public Use
  Company Number: US-GLAXOSMITHKLINE-A0761180A

PATIENT
  Sex: Male
  Weight: 114 kg

DRUGS (2)
  1. AVANDIA [Suspect]
     Active Substance: ROSIGLITAZONE MALEATE
     Indication: TYPE 2 DIABETES MELLITUS
     Route: 048
     Dates: start: 1999, end: 20061101
  2. GLUCOTROL [Concomitant]
     Active Substance: GLIPIZIDE

REACTIONS (2)
  - Cardiac failure congestive [Fatal]
  - Coronary artery disease [Unknown]
